FAERS Safety Report 10309487 (Version 1)
Quarter: 2014Q3

REPORT INFORMATION
  Report Type: Spontaneous
  Country: IT (occurrence: IT)
  Receive Date: 20140717
  Receipt Date: 20140717
  Transmission Date: 20150326
  Serious: Yes (Hospitalization)
  Sender: FDA-Public Use
  Company Number: IT-MYLANLABS-2014S1016133

PATIENT
  Sex: Female

DRUGS (2)
  1. WARFARIN [Concomitant]
     Active Substance: WARFARIN
     Route: 065
  2. DIGOXIN. [Suspect]
     Active Substance: DIGOXIN
     Route: 065

REACTIONS (2)
  - Syncope [Recovered/Resolved]
  - Toxicity to various agents [Recovered/Resolved]
